FAERS Safety Report 9353702 (Version 1)
Quarter: 2013Q2

REPORT INFORMATION
  Report Type: Spontaneous
  Country: CN (occurrence: CN)
  Receive Date: 20130618
  Receipt Date: 20130618
  Transmission Date: 20140414
  Serious: Yes (Hospitalization)
  Sender: FDA-Public Use
  Company Number: CN-PFIZER INC-2013178083

PATIENT
  Age: 8 Month
  Sex: Male

DRUGS (2)
  1. CEFACLOR [Concomitant]
     Indication: PRODUCT USED FOR UNKNOWN INDICATION
     Route: 048
  2. MOTRIN IB [Suspect]
     Dosage: 0.825 ML, 2X/DAY
     Route: 048
     Dates: start: 20121018, end: 20121023

REACTIONS (2)
  - Leukopenia [Recovered/Resolved]
  - Bronchitis [Unknown]
